FAERS Safety Report 5093775-2 (Version None)
Quarter: 2006Q3

REPORT INFORMATION
  Report Type: 
  Country: None (occurrence: None)
  Receive Date: 20060831
  Receipt Date: 20060828
  Transmission Date: 20061208
  Serious: Yes (Other)
  Sender: FDA-Public Use
  Company Number: US-JNJFOC-20060705599

PATIENT
  Sex: Female
  Weight: 46.72 kg

DRUGS (13)
  1. REMICADE [Suspect]
     Route: 042
  2. REMICADE [Suspect]
     Route: 042
  3. REMICADE [Suspect]
     Indication: PSORIATIC ARTHROPATHY
     Route: 042
  4. PREDNISONE TAB [Concomitant]
     Indication: PSORIATIC ARTHROPATHY
  5. METHOTREXATE [Concomitant]
     Indication: PSORIATIC ARTHROPATHY
     Dosage: ^3 TABLETS^
  6. OXYCODONE HCL [Concomitant]
     Indication: PAIN
  7. TRANZENE [Concomitant]
     Dosage: AT BEDTIME
  8. TRAZODONE HCL [Concomitant]
     Indication: DEPRESSION
     Dosage: AT BEDTIME
  9. DEXADRINE [Concomitant]
  10. XANAX [Concomitant]
     Dosage: NIGHTLY
  11. HORMONE REPLACEMENT THERAPY [Concomitant]
  12. PREVACID [Concomitant]
     Indication: GASTRIC DISORDER
  13. PSORIASIS CREAM [Concomitant]
     Indication: PSORIASIS

REACTIONS (4)
  - FALL [None]
  - HIP FRACTURE [None]
  - RIB FRACTURE [None]
  - SOMNOLENCE [None]
